FAERS Safety Report 4361776-5 (Version None)
Quarter: 2004Q2

REPORT INFORMATION
  Report Type: 
  Country: None (occurrence: None)
  Receive Date: 20040521
  Receipt Date: 20040311
  Transmission Date: 20050107
  Serious: No
  Sender: FDA-Public Use
  Company Number: US-GLAXOSMITHKLINE-A0502370A

PATIENT
  Age: 57 Year
  Sex: Female

DRUGS (7)
  1. WELLBUTRIN XL [Suspect]
     Indication: DEPRESSION
     Dosage: 300MG PER DAY
     Route: 048
     Dates: start: 20031101, end: 20040225
  2. IMIPRAMINE [Concomitant]
  3. KLONOPIN [Concomitant]
  4. HORMONE REPLACEMENT [Concomitant]
  5. INDOCIN [Concomitant]
  6. NEURONTIN [Concomitant]
  7. PRILOSEC [Concomitant]

REACTIONS (3)
  - ANXIETY [None]
  - NERVOUSNESS [None]
  - SWELLING [None]
